FAERS Safety Report 10239820 (Version 3)
Quarter: 2014Q4

REPORT INFORMATION
  Report Type: Spontaneous
  Country: IT (occurrence: IT)
  Receive Date: 20140616
  Receipt Date: 20141014
  Transmission Date: 20150528
  Serious: Yes (Other)
  Sender: FDA-Public Use
  Company Number: IT-ABBVIE-14P-083-1247698-00

PATIENT
  Age: 6 Year
  Sex: Male

DRUGS (1)
  1. SORICLAR [Suspect]
     Active Substance: CLARITHROMYCIN
     Indication: COUGH
     Dosage: FORM STRENGTH: 250 MG/5 ML
     Route: 048
     Dates: start: 20140525, end: 20140528

REACTIONS (2)
  - Bronchopneumonia [Recovering/Resolving]
  - Drug ineffective [Recovering/Resolving]

NARRATIVE: CASE EVENT DATE: 20140528
